FAERS Safety Report 8610242-7 (Version None)
Quarter: 2012Q3

REPORT INFORMATION
  Report Type: 
  Country: None (occurrence: None)
  Receive Date: 20120810
  Receipt Date: 20120810
  Transmission Date: 20120928
  Serious: Yes (Other)
  Sender: FDA-Public Use
  Company Number: None

PATIENT
  Sex: Female
  Weight: 74.8435 kg

DRUGS (1)
  1. ALENDRONATE SODIUM [Suspect]
     Indication: OSTEOPOROSIS
     Dosage: ONCE PER MONTH 70 MG ONCE PER MONTH PO
     Route: 048
     Dates: start: 20100320, end: 20111001

REACTIONS (9)
  - MOUTH ULCERATION [None]
  - ORAL MUCOSAL BLISTERING [None]
  - GINGIVAL PAIN [None]
  - DIARRHOEA [None]
  - HEADACHE [None]
  - IMPAIRED HEALING [None]
  - OROPHARYNGEAL PAIN [None]
  - CONSTIPATION [None]
  - HAEMORRHAGE [None]
